FAERS Safety Report 19957219 (Version 1)
Quarter: 2021Q4

REPORT INFORMATION
  Report Type: Other
  Country: BG (occurrence: BG)
  Receive Date: 20211015
  Receipt Date: 20211015
  Transmission Date: 20220303
  Serious: Yes (Hospitalization)
  Sender: FDA-Public Use
  Company Number: BG-ROCHE-2931740

PATIENT
  Age: 57 Year
  Sex: Female
  Weight: 48 kg

DRUGS (5)
  1. OCRELIZUMAB [Suspect]
     Active Substance: OCRELIZUMAB
     Indication: Primary progressive multiple sclerosis
     Dosage: START DATE OF MOST RECENT DOSE (600 MG) OF STUDY DRUG PRIOR TO AE: 29/APR/2021
     Route: 042
     Dates: start: 20200917
  2. GLATIRAMER ACETATE [Concomitant]
     Active Substance: GLATIRAMER ACETATE
     Dates: start: 201910
  3. ALLERGOSAN [Concomitant]
     Dosage: 1 AMPULE
     Route: 030
     Dates: start: 20210429, end: 20210429
  4. METHYLPREDNISOLONE [Concomitant]
     Active Substance: METHYLPREDNISOLONE
     Route: 042
     Dates: start: 20210429, end: 20210429
  5. ACETAMINOPHEN [Concomitant]
     Active Substance: ACETAMINOPHEN
     Route: 042
     Dates: start: 20210429, end: 20210429

REACTIONS (1)
  - COVID-19 [Recovered/Resolved]

NARRATIVE: CASE EVENT DATE: 20210515
